FAERS Safety Report 10387658 (Version 1)
Quarter: 2014Q3

REPORT INFORMATION
  Report Type: Spontaneous
  Country: US (occurrence: None)
  Receive Date: 20140814
  Receipt Date: 20140814
  Transmission Date: 20150326
  Serious: Yes (Disabling)
  Sender: FDA-Public Use
  Company Number: None

PATIENT
  Age: 38 Year
  Sex: Female
  Weight: 54.43 kg

DRUGS (4)
  1. QNASL [Suspect]
     Active Substance: BECLOMETHASONE DIPROPIONATE
     Indication: HYPERSENSITIVITY
     Dosage: 1 SQUIR DAILY IN EACH NOSTRIL ONCE DAILY INTRANSAL
     Dates: start: 20131001, end: 20140103
  2. QNASL [Suspect]
     Active Substance: BECLOMETHASONE DIPROPIONATE
     Indication: ENDOSCOPY
     Dosage: 1 SQUIR DAILY IN EACH NOSTRIL ONCE DAILY INTRANSAL
     Dates: start: 20131001, end: 20140103
  3. QNASL [Suspect]
     Active Substance: BECLOMETHASONE DIPROPIONATE
     Indication: SINUS DISORDER
     Dosage: 1 SQUIR DAILY IN EACH NOSTRIL ONCE DAILY INTRANSAL
     Dates: start: 20131001, end: 20140103
  4. QNASL [Suspect]
     Active Substance: BECLOMETHASONE DIPROPIONATE
     Indication: INFLAMMATION
     Dosage: 1 SQUIR DAILY IN EACH NOSTRIL ONCE DAILY INTRANSAL
     Dates: start: 20131001, end: 20140103

REACTIONS (7)
  - Substance-induced psychotic disorder [None]
  - Syncope [None]
  - Panic attack [None]
  - Fatigue [None]
  - Hypertension [None]
  - Pain [None]
  - Drug withdrawal syndrome [None]

NARRATIVE: CASE EVENT DATE: 20131223
